FAERS Safety Report 23368672 (Version 2)
Quarter: 2024Q1

REPORT INFORMATION
  Report Type: Report from Study
  Country: US (occurrence: US)
  Receive Date: 20240105
  Receipt Date: 20240201
  Transmission Date: 20240410
  Serious: No
  Sender: FDA-Public Use
  Company Number: US-ACADIA PHARMACEUTICALS INC.-ACA-2023-PIM-005795

PATIENT
  Age: 77 Year
  Sex: Male

DRUGS (10)
  1. NUPLAZID [Suspect]
     Active Substance: PIMAVANSERIN TARTRATE
     Indication: Parkinson^s disease psychosis
     Dosage: 34 MILLIGRAM, QD
     Route: 048
     Dates: start: 20231028, end: 20231208
  2. BUPROPION [Concomitant]
     Active Substance: BUPROPION
  3. DONEPEZIL [Concomitant]
     Active Substance: DONEPEZIL
  4. MELATONIN [Concomitant]
     Active Substance: MELATONIN
  5. MELOXICAM [Concomitant]
     Active Substance: MELOXICAM
  6. METOPROLOL [Concomitant]
     Active Substance: METOPROLOL
  7. PREGABALIN [Concomitant]
     Active Substance: PREGABALIN
  8. SERTRALINE [Concomitant]
     Active Substance: SERTRALINE HYDROCHLORIDE
  9. TAMSULOSIN [Concomitant]
     Active Substance: TAMSULOSIN
  10. VALSARTAN [Concomitant]
     Active Substance: VALSARTAN

REACTIONS (2)
  - Delusion [Recovered/Resolved]
  - Agitation [Recovered/Resolved]

NARRATIVE: CASE EVENT DATE: 20231207
